FAERS Safety Report 9610854 (Version 1)
Quarter: 2013Q4

REPORT INFORMATION
  Report Type: Spontaneous
  Country: DE (occurrence: DE)
  Receive Date: 20131009
  Receipt Date: 20131009
  Transmission Date: 20140711
  Serious: Yes (Life-Threatening, Congenital Anomaly)
  Sender: FDA-Public Use
  Company Number: GXKR2013DE003196

PATIENT
  Sex: 0

DRUGS (3)
  1. METFORMIN [Suspect]
     Dosage: MATERNAL DOSE: 1000 [MG/D ], 0.-11.2 GW
     Route: 064
  2. TRAMAL [Concomitant]
     Dosage: MATERNAL DOSE: ONCE, 1ST TRIMESTER
     Route: 064
  3. FOLSAEURE [Concomitant]
     Dosage: MATERNAL DOSE: UNK UKN, UNK, 5.-11.2 GW
     Route: 064

REACTIONS (3)
  - Meningomyelocele [Not Recovered/Not Resolved]
  - Ectopia cordis [Not Recovered/Not Resolved]
  - Gastroschisis [Not Recovered/Not Resolved]
